FAERS Safety Report 5716335-6 (Version None)
Quarter: 2008Q2

REPORT INFORMATION
  Report Type: 
  Country: None (occurrence: None)
  Receive Date: 20080416
  Receipt Date: 20080117
  Transmission Date: 20081010
  Serious: Yes (Other)
  Sender: FDA-Public Use
  Company Number: PHEH2008US01083

PATIENT
  Sex: Female

DRUGS (2)
  1. FORADIL [Suspect]
     Indication: CHRONIC OBSTRUCTIVE PULMONARY DISEASE
     Dosage: INHALATION
     Route: 055
  2. SPIRIVA [Suspect]
     Dosage: INHALATION
     Route: 055

REACTIONS (5)
  - BLOOD PRESSURE INCREASED [None]
  - DYSGRAPHIA [None]
  - HEADACHE [None]
  - IMPAIRED DRIVING ABILITY [None]
  - TREMOR [None]
